FAERS Safety Report 21258577 (Version 1)
Quarter: 2022Q3

REPORT INFORMATION
  Report Type: Other
  Country: CN (occurrence: None)
  Receive Date: 20220826
  Receipt Date: 20220826
  Transmission Date: 20221026
  Serious: No
  Sender: FDA-Public Use
  Company Number: CN-ROCHE-3168445

PATIENT

DRUGS (2)
  1. ALTEPLASE [Suspect]
     Active Substance: ALTEPLASE
     Indication: Ischaemic stroke
     Dosage: WAS {/- 90 MG. 0.9MG PER KILOGRAM WAS MIXED INTO 100ML OF 0.9 SODIUM CHLORIDE SOLUTION, 10% WAS INJE
     Route: 042
  2. ALTEPLASE [Suspect]
     Active Substance: ALTEPLASE
     Indication: Thrombolysis

REACTIONS (2)
  - Drug ineffective [Unknown]
  - No adverse event [Unknown]
